FAERS Safety Report 8576494-7 (Version None)
Quarter: 2012Q3

REPORT INFORMATION
  Report Type: 
  Country: None (occurrence: None)
  Receive Date: 20120725
  Receipt Date: 20120712
  Transmission Date: 20120928
  Serious: Yes (Life-Threatening)
  Sender: FDA-Public Use
  Company Number: FK201201992

PATIENT
  Age: 50 Year
  Sex: Male
  Weight: 107 kg

DRUGS (2)
  1. CETUXIMAB (CETUXIMAB) [Concomitant]
  2. OXALIPLATIN [Suspect]
     Indication: RECTAL CANCER
     Dosage: 187 MG, INTRAVENOUS (NOT OTHERWISE SPECIFIED)
     Route: 042
     Dates: start: 20120619, end: 20120619

REACTIONS (2)
  - RENAL FAILURE ACUTE [None]
  - EXTRAVASCULAR HAEMOLYSIS [None]
